FAERS Safety Report 4540810-3 (Version None)
Quarter: 2004Q4

REPORT INFORMATION
  Report Type: 
  Country: None (occurrence: None)
  Receive Date: 20041229
  Receipt Date: 20041222
  Transmission Date: 20050328
  Serious: Yes (Other)
  Sender: FDA-Public Use
  Company Number: GB-MERCK-0412USA02734

PATIENT
  Age: 46 Year
  Sex: Male
  Weight: 91 kg

DRUGS (2)
  1. PRINIVIL [Suspect]
     Route: 048
  2. TEGRETOL [Concomitant]
     Route: 048
     Dates: start: 20000101

REACTIONS (1)
  - EPILEPTIC AURA [None]
